FAERS Safety Report 17757478 (Version 1)
Quarter: 2020Q2

REPORT INFORMATION
  Report Type: Spontaneous
  Country: FR (occurrence: FR)
  Receive Date: 20200507
  Receipt Date: 20200507
  Transmission Date: 20200714
  Serious: Yes (Hospitalization)
  Sender: FDA-Public Use
  Company Number: FR-PFIZER INC-2020180081

PATIENT
  Age: 54 Year
  Sex: Male
  Weight: 64 kg

DRUGS (12)
  1. LINEZOLID. [Suspect]
     Active Substance: LINEZOLID
     Dosage: 600 MG, EVERY 12 HOURS
     Route: 042
     Dates: start: 20200402, end: 20200405
  2. ATROVENT [Concomitant]
     Active Substance: IPRATROPIUM BROMIDE
     Dosage: 0.5 MG, EVERY 8 HOURS
     Route: 055
     Dates: start: 20200404
  3. NIMBEX [Concomitant]
     Active Substance: CISATRACURIUM BESYLATE
     Dosage: UNK
     Route: 042
     Dates: start: 20200402, end: 20200404
  4. CEFOTAXIME [Suspect]
     Active Substance: CEFOTAXIME SODIUM
     Dosage: 1 G, EVERY 8 HOURS
     Route: 042
     Dates: start: 20200402, end: 20200405
  5. HYDROCORTISONE HEMISUCCINATE [Concomitant]
     Active Substance: HYDROCORTISONE HEMISUCCINATE
     Dosage: UNK
     Route: 042
     Dates: start: 20200402
  6. MIDAZOLAM HCL [Concomitant]
     Active Substance: MIDAZOLAM HYDROCHLORIDE
     Dosage: UNK
     Route: 042
     Dates: start: 20200402
  7. ACTRAPID [Concomitant]
     Active Substance: INSULIN HUMAN
     Dosage: UNK
     Route: 042
  8. LEVETIRACETAM. [Suspect]
     Active Substance: LEVETIRACETAM
     Indication: GENERALISED TONIC-CLONIC SEIZURE
     Dosage: 500 MG, EVERY 12 HOURS
     Route: 042
     Dates: start: 20200402, end: 20200407
  9. PARACETAMOL [Concomitant]
     Active Substance: ACETAMINOPHEN
     Dosage: 1 G, 1X/DAY
     Route: 042
     Dates: start: 20200403, end: 20200404
  10. SALBUTAMOL [Concomitant]
     Active Substance: ALBUTEROL
     Dosage: 5 MG, EVERY 8 HOURS
     Route: 055
     Dates: start: 20200401
  11. NORADRENALINE [NOREPINEPHRINE] [Concomitant]
     Active Substance: NOREPINEPHRINE
     Dosage: UNK
     Route: 042
     Dates: start: 20200404
  12. MORPHINE [Concomitant]
     Active Substance: MORPHINE
     Dosage: UNK
     Route: 042
     Dates: start: 20200403

REACTIONS (2)
  - Bicytopenia [Not Recovered/Not Resolved]
  - Blood creatine phosphokinase increased [Recovering/Resolving]

NARRATIVE: CASE EVENT DATE: 20200404
